FAERS Safety Report 8480972 (Version 6)
Quarter: 2017Q3

REPORT INFORMATION
  Report Type: Report from Study
  Country: DE (occurrence: DE)
  Receive Date: 20120328
  Receipt Date: 20170718
  Transmission Date: 20171128
  Serious: Yes (Other)
  Sender: FDA-Public Use
  Company Number: DE-PFIZER INC-2012073360

PATIENT
  Age: 73 Year
  Sex: Male
  Weight: 65 kg

DRUGS (3)
  1. BENDAMUSTINE [Suspect]
     Active Substance: BENDAMUSTINE
     Dosage: 161.10 MG, UNK
     Dates: start: 20120308
  2. TEMSIROLIMUS [Suspect]
     Active Substance: TEMSIROLIMUS
     Dosage: 75 MG, UNK
     Dates: start: 20120309
  3. RITUXIMAB. [Suspect]
     Active Substance: RITUXIMAB
     Dosage: 671.25 MG, UNK
     Dates: start: 20120307

REACTIONS (1)
  - Lymphopenia [Recovering/Resolving]

NARRATIVE: CASE EVENT DATE: 20120322
